FAERS Safety Report 5096839-2 (Version None)
Quarter: 2006Q3

REPORT INFORMATION
  Report Type: 
  Country: None (occurrence: None)
  Receive Date: 20060901
  Receipt Date: 20060901
  Transmission Date: 20061208
  Serious: Yes (Other)
  Sender: FDA-Public Use
  Company Number: None

PATIENT
  Sex: Female

DRUGS (2)
  1. ATRIPLA [Suspect]
     Indication: ACQUIRED IMMUNODEFICIENCY SYNDROME
     Dosage: ONE TABLET AT BEDTIME BY MOUTH
     Dates: start: 20060820, end: 20060824
  2. ATRIPLA [Suspect]
     Indication: HIV INFECTION
     Dosage: ONE TABLET AT BEDTIME BY MOUTH
     Dates: start: 20060820, end: 20060824

REACTIONS (1)
  - HYPERSENSITIVITY [None]
